FAERS Safety Report 4750437-6 (Version None)
Quarter: 2005Q3

REPORT INFORMATION
  Report Type: 
  Country: None (occurrence: None)
  Receive Date: 20050823
  Receipt Date: 20050816
  Transmission Date: 20060218
  Serious: Yes (Hospitalization, Other)
  Sender: FDA-Public Use
  Company Number: PHEH2005US09118

PATIENT
  Age: 75 Year
  Sex: Male

DRUGS (4)
  1. ZOMETA [Suspect]
     Indication: METASTASES TO BONE
     Dates: start: 20030501
  2. CHEMOTHERAPEUTICS,OTHER [Concomitant]
  3. DURAGESIC-100 [Concomitant]
     Route: 062
  4. PERCOCET [Concomitant]

REACTIONS (3)
  - ABSCESS DRAINAGE [None]
  - ABSCESS ORAL [None]
  - ASEPTIC NECROSIS BONE [None]
